FAERS Safety Report 6241947-3 (Version None)
Quarter: 2009Q2

REPORT INFORMATION
  Report Type: 
  Country: None (occurrence: None)
  Receive Date: 20090623
  Receipt Date: 20090610
  Transmission Date: 20091009
  Serious: Yes (Hospitalization, Other)
  Sender: FDA-Public Use
  Company Number: IT-MERCK-0906ITA00026

PATIENT
  Age: 44 Year
  Sex: Female

DRUGS (4)
  1. SINGULAIR [Suspect]
     Indication: ASTHMA
     Route: 048
  2. PREDNISONE [Concomitant]
     Indication: ALLERGIC GRANULOMATOUS ANGIITIS
     Route: 065
  3. AZATHIOPRINE [Concomitant]
     Indication: ALLERGIC GRANULOMATOUS ANGIITIS
     Route: 065
  4. BUDESONIDE [Concomitant]
     Indication: ALLERGIC GRANULOMATOUS ANGIITIS

REACTIONS (3)
  - ALLERGIC GRANULOMATOUS ANGIITIS [None]
  - DRUG INEFFECTIVE [None]
  - DYSPNOEA [None]
